FAERS Safety Report 9219443 (Version 1)
Quarter: 2013Q2

REPORT INFORMATION
  Report Type: Spontaneous
  Country: US (occurrence: US)
  Receive Date: 20130409
  Receipt Date: 20130409
  Transmission Date: 20140414
  Serious: No
  Sender: FDA-Public Use
  Company Number: US-PFIZER INC-2013109399

PATIENT
  Age: 61 Year
  Sex: Female

DRUGS (4)
  1. INDERAL LA [Suspect]
     Indication: BLOOD PRESSURE ABNORMAL
     Dosage: 1 CAPSULE, DAILY
     Route: 048
     Dates: start: 2007, end: 2007
  2. INDERAL LA [Suspect]
     Indication: HEART RATE ABNORMAL
  3. LOSARTAN POTASSIUM [Concomitant]
     Dosage: UNK
     Dates: start: 2013
  4. COUMADIN [Concomitant]
     Indication: THROMBOSIS
     Dosage: UNK
     Dates: start: 2005

REACTIONS (1)
  - Dyspnoea [Unknown]
